FAERS Safety Report 4489754-6 (Version None)
Quarter: 2004Q4

REPORT INFORMATION
  Report Type: 
  Country: None (occurrence: None)
  Receive Date: 20041026
  Receipt Date: 20041013
  Transmission Date: 20050328
  Serious: Yes (Other)
  Sender: FDA-Public Use
  Company Number: 2004070466

PATIENT
  Sex: Male

DRUGS (3)
  1. CARDURA XL [Suspect]
     Indication: HYPERTENSION
     Dosage: 4 MG (4 MG, 1 IN 1 D), ORAL
     Route: 048
  2. CARDURA XL [Suspect]
     Indication: PROSTATIC DISORDER
     Dosage: 4 MG (4 MG, 1 IN 1 D), ORAL
     Route: 048
  3. ATENOLOL [Concomitant]

REACTIONS (4)
  - POST PROCEDURAL COMPLICATION [None]
  - PROSTATE CANCER [None]
  - TREMOR [None]
  - URINARY INCONTINENCE [None]
